FAERS Safety Report 23919248 (Version 1)
Quarter: 2024Q2

REPORT INFORMATION
  Report Type: Spontaneous
  Country: CZ (occurrence: CZ)
  Receive Date: 20240530
  Receipt Date: 20240530
  Transmission Date: 20240716
  Serious: Yes (Other)
  Sender: FDA-Public Use
  Company Number: CZ-MEDO2008-000727

PATIENT
  Age: 39 Year
  Sex: Male

DRUGS (3)
  1. PREGABALIN [Suspect]
     Active Substance: PREGABALIN
     Indication: Generalised anxiety disorder
     Dosage: 2400 MILLIGRAM, ONCE A DAY (BY SNIFFING)
     Route: 065
  2. PREGABALIN [Suspect]
     Active Substance: PREGABALIN
     Dosage: 1500 MILLIGRAM
     Route: 065
  3. PREGABALIN [Suspect]
     Active Substance: PREGABALIN
     Dosage: 600 MILLIGRAM, TWO TIMES A DAY (IN TWO PARTIAL DOSES)
     Route: 065

REACTIONS (10)
  - Drug dependence [Unknown]
  - Psychiatric decompensation [Unknown]
  - Conjunctival hyperaemia [Unknown]
  - Withdrawal syndrome [Unknown]
  - Anxiety [Unknown]
  - Insomnia [Unknown]
  - Hyperhidrosis [Unknown]
  - Aggression [Unknown]
  - Tension [Unknown]
  - Intentional product use issue [Unknown]
